APPROVED DRUG PRODUCT: TYLENOL
Active Ingredient: ACETAMINOPHEN
Strength: 650MG
Dosage Form/Route: TABLET, EXTENDED RELEASE;ORAL
Application: N019872 | Product #001
Applicant: KENVUE BRANDS LLC
Approved: Jun 8, 1994 | RLD: Yes | RS: Yes | Type: OTC